FAERS Safety Report 5517620-3 (Version None)
Quarter: 2007Q4

REPORT INFORMATION
  Report Type: 
  Country: None (occurrence: None)
  Receive Date: 20071114
  Receipt Date: 20071105
  Transmission Date: 20080405
  Serious: Yes (Life-Threatening, Other)
  Sender: FDA-Public Use
  Company Number: CA-PFIZER INC-2007093835

PATIENT
  Age: 70 Year
  Sex: Female

DRUGS (3)
  1. FRAGMIN [Suspect]
     Indication: PULMONARY EMBOLISM
  2. TRAZODONE HCL [Concomitant]
  3. PANTOLOC ^BYK MADAUS^ [Concomitant]

REACTIONS (2)
  - LYMPHOEDEMA [None]
  - PERITONITIS [None]
